FAERS Safety Report 7944808-4 (Version None)
Quarter: 2011Q4

REPORT INFORMATION
  Report Type: 
  Country: None (occurrence: None)
  Receive Date: 20111129
  Receipt Date: 20111123
  Transmission Date: 20120403
  Serious: Yes (Other)
  Sender: FDA-Public Use
  Company Number: US-BRISTOL-MYERS SQUIBB COMPANY-16245243

PATIENT
  Age: 67 Year
  Sex: Male

DRUGS (7)
  1. LYRICA [Concomitant]
  2. CYMBALTA [Concomitant]
  3. ONGLYZA [Suspect]
  4. PLAVIX [Concomitant]
  5. CRESTOR [Concomitant]
  6. VITAMIN D [Concomitant]
  7. CLONAZEPAM [Concomitant]

REACTIONS (5)
  - VOMITING [None]
  - DIARRHOEA [None]
  - ABDOMINAL DISTENSION [None]
  - DEHYDRATION [None]
  - ERUCTATION [None]
